FAERS Safety Report 4680188-8 (Version None)
Quarter: 2005Q2

REPORT INFORMATION
  Report Type: 
  Country: None (occurrence: None)
  Receive Date: 20050602
  Receipt Date: 20050223
  Transmission Date: 20051028
  Serious: Yes (Other)
  Sender: FDA-Public Use
  Company Number: PHBS2005BE02994

PATIENT
  Age: 60 Year
  Sex: Male

DRUGS (7)
  1. FOLIC ACID [Concomitant]
     Route: 065
  2. ZOVIRAX [Concomitant]
     Route: 065
  3. BEFACT [Concomitant]
     Route: 065
  4. ZOMETA [Suspect]
     Indication: MULTIPLE MYELOMA
     Dosage: UNK, UNK
     Route: 042
     Dates: end: 20050101
  5. VINCRISTINE + ADRIAMYCIN + DEXAMETHASONE [Concomitant]
     Dosage: 3 CURES
     Route: 065
     Dates: start: 20040101
  6. MELPHALAN [Concomitant]
     Dosage: HIGH DOSES
     Route: 065
     Dates: start: 20040501
  7. BONE MARROW TRANSPLANT [Concomitant]
     Dosage: AUTOLOGOUS STEM CELL TRANSPLANT
     Route: 065
     Dates: start: 20040501

REACTIONS (9)
  - GINGIVAL POLYP [None]
  - GRANULOMA [None]
  - IMPAIRED HEALING [None]
  - MALIGNANT NEOPLASM PROGRESSION [None]
  - PAIN [None]
  - STEM CELL TRANSPLANT [None]
  - TOOTH EXTRACTION [None]
  - WOUND DEBRIDEMENT [None]
  - WOUND DEHISCENCE [None]
